FAERS Safety Report 13071475 (Version 3)
Quarter: 2017Q1

REPORT INFORMATION
  Report Type: Spontaneous
  Country: US (occurrence: US)
  Receive Date: 20161229
  Receipt Date: 20170228
  Transmission Date: 20170428
  Serious: No
  Sender: FDA-Public Use
  Company Number: US-PFIZER INC-2016594702

PATIENT
  Age: 79 Year
  Sex: Female

DRUGS (1)
  1. CELEBREX [Suspect]
     Active Substance: CELECOXIB
     Dosage: 20 MG, DAILY

REACTIONS (2)
  - Decreased appetite [Recovered/Resolved]
  - Pancreatic cyst [Recovered/Resolved]

NARRATIVE: CASE EVENT DATE: 201611
